FAERS Safety Report 13310329 (Version 5)
Quarter: 2021Q2

REPORT INFORMATION
  Report Type: Spontaneous
  Country: US (occurrence: US)
  Receive Date: 20170309
  Receipt Date: 20210531
  Transmission Date: 20210716
  Serious: Yes (Other)
  Sender: FDA-Public Use
  Company Number: US-JNJFOC-20170201417

PATIENT
  Age: 22 Year
  Sex: Male

DRUGS (4)
  1. RISPERDAL CONSTA [Suspect]
     Active Substance: RISPERIDONE
     Indication: SCHIZOPHRENIA
     Route: 030
     Dates: start: 20070901, end: 200807
  2. RISPERDAL CONSTA [Suspect]
     Active Substance: RISPERIDONE
     Indication: THINKING ABNORMAL
  3. RISPERDAL CONSTA [Suspect]
     Active Substance: RISPERIDONE
  4. RISPERDAL CONSTA [Suspect]
     Active Substance: RISPERIDONE

REACTIONS (4)
  - Gynaecomastia [Unknown]
  - Abnormal weight gain [Unknown]
  - Treatment noncompliance [Unknown]
  - Emotional disorder [Unknown]

NARRATIVE: CASE EVENT DATE: 200712
